FAERS Safety Report 6686894-8 (Version None)
Quarter: 2010Q2

REPORT INFORMATION
  Report Type: 
  Country: None (occurrence: None)
  Receive Date: 20100419
  Receipt Date: 20100412
  Transmission Date: 20101027
  Serious: Yes (Other)
  Sender: FDA-Public Use
  Company Number: ES-GILEAD-E2B_00000663

PATIENT
  Age: 64 Year
  Sex: Male

DRUGS (4)
  1. TRUVADA [Suspect]
     Indication: HIV INFECTION
     Route: 048
     Dates: start: 20090301, end: 20091215
  2. VIRAMUNE [Concomitant]
     Indication: HIV INFECTION
     Dosage: 1 CADA 12 HORAS
     Route: 048
     Dates: start: 20060525
  3. NEURONTIN [Concomitant]
     Indication: NEURALGIA
     Route: 048
     Dates: start: 20090114
  4. LIORESAL [Concomitant]
     Indication: NEURALGIA
     Dosage: MEDIO DOS VECES AL DIA
     Route: 048

REACTIONS (1)
  - DERMATITIS BULLOUS [None]
